FAERS Safety Report 5411055-X (Version None)
Quarter: 2007Q3

REPORT INFORMATION
  Report Type: 
  Country: None (occurrence: None)
  Receive Date: 20070810
  Receipt Date: 20070807
  Transmission Date: 20080115
  Serious: Yes (Other)
  Sender: FDA-Public Use
  Company Number: JP-JNJFOC-20070705357

PATIENT
  Sex: Female
  Weight: 48 kg

DRUGS (1)
  1. ORTHO-NOVUM 7/7/7-21 [Suspect]
     Indication: CONTRACEPTION

REACTIONS (2)
  - DRUG ERUPTION [None]
  - PIGMENTATION DISORDER [None]
